FAERS Safety Report 23595803 (Version 1)
Quarter: 2024Q1

REPORT INFORMATION
  Report Type: Spontaneous
  Country: US (occurrence: US)
  Receive Date: 20240305
  Receipt Date: 20240305
  Transmission Date: 20240410
  Serious: Yes (Death, Hospitalization)
  Sender: FDA-Public Use
  Company Number: US-MYLANLABS-2024M1020377

PATIENT
  Age: 75 Year
  Sex: Female

DRUGS (2)
  1. OXALIPLATIN [Suspect]
     Active Substance: OXALIPLATIN
     Indication: Gallbladder cancer
     Dosage: UNK
     Route: 065
  2. GEMCITABINE [Suspect]
     Active Substance: GEMCITABINE
     Indication: Gallbladder cancer
     Dosage: UNK
     Route: 065

REACTIONS (3)
  - Interstitial lung disease [Fatal]
  - Hypoxia [Fatal]
  - Condition aggravated [Fatal]
